FAERS Safety Report 8162640-6 (Version None)
Quarter: 2012Q1

REPORT INFORMATION
  Report Type: 
  Country: None (occurrence: None)
  Receive Date: 20120103
  Receipt Date: 20110926
  Transmission Date: 20120608
  Serious: No
  Sender: FDA-Public Use
  Company Number: AE-2011-001839

PATIENT
  Sex: Female

DRUGS (6)
  1. RIBAVIRIN [Concomitant]
  2. HYDROCHLOROTHIAZIDE [Concomitant]
  3. MOBIC [Concomitant]
  4. INCIVEK [Suspect]
     Dosage: 2250 MG (750 MG, 3 IN 1 D), ORAL
     Route: 048
     Dates: start: 20110908
  5. CYMBALTA [Concomitant]
  6. PEGASYS [Concomitant]

REACTIONS (3)
  - GAIT DISTURBANCE [None]
  - PAIN IN EXTREMITY [None]
  - MUSCLE SPASMS [None]
